FAERS Safety Report 5078919-0 (Version None)
Quarter: 2006Q3

REPORT INFORMATION
  Report Type: 
  Country: None (occurrence: None)
  Receive Date: 20060814
  Receipt Date: 20060629
  Transmission Date: 20061208
  Serious: Yes (Other)
  Sender: FDA-Public Use
  Company Number: PHFR2006GB02122

PATIENT
  Age: 55 Year

DRUGS (1)
  1. AREDIA [Suspect]
     Indication: OSTEOPOROSIS
     Dosage: UNK, UNK
     Route: 042
     Dates: start: 20060627

REACTIONS (5)
  - DRUG ADMINISTRATION ERROR [None]
  - ERYTHEMA [None]
  - EXTRAVASATION [None]
  - OEDEMA PERIPHERAL [None]
  - WRONG TECHNIQUE IN DRUG USAGE PROCESS [None]
